FAERS Safety Report 11675873 (Version 3)
Quarter: 2016Q1

REPORT INFORMATION
  Report Type: Spontaneous
  Country: US (occurrence: US)
  Receive Date: 20151028
  Receipt Date: 20160302
  Transmission Date: 20160525
  Serious: Yes (Other)
  Sender: FDA-Public Use
  Company Number: US-BRISTOL-MYERS SQUIBB COMPANY-BMS-2015-072992

PATIENT
  Age: 33 Year
  Sex: Male

DRUGS (1)
  1. ELIQUIS [Suspect]
     Active Substance: APIXABAN
     Indication: THROMBOSIS PROPHYLAXIS
     Dosage: 5 MG, BID
     Route: 048
     Dates: start: 20150608, end: 20150723

REACTIONS (4)
  - Rectal haemorrhage [Recovering/Resolving]
  - Blood urine present [Not Recovered/Not Resolved]
  - Colitis [Recovering/Resolving]
  - Haematochezia [Recovered/Resolved]

NARRATIVE: CASE EVENT DATE: 20150722
